FAERS Safety Report 7910145-7 (Version None)
Quarter: 2011Q4

REPORT INFORMATION
  Report Type: 
  Country: None (occurrence: None)
  Receive Date: 20111111
  Receipt Date: 20110822
  Transmission Date: 20120403
  Serious: Yes (Hospitalization)
  Sender: FDA-Public Use
  Company Number: US-ROCHE-1009575

PATIENT
  Age: 46 Year
  Sex: Female

DRUGS (6)
  1. SINGULAIR [Concomitant]
  2. HUMALOG [Concomitant]
  3. PRED [Concomitant]
  4. ADVAIR DISKUS 100/50 [Concomitant]
  5. CRESTOR [Concomitant]
  6. XOLAIR [Suspect]
     Indication: PRODUCT USED FOR UNKNOWN INDICATION
     Route: 058
     Dates: start: 20110815, end: 20110815

REACTIONS (1)
  - ASTHMA [None]
